FAERS Safety Report 4672375-X (Version None)
Quarter: 2005Q2

REPORT INFORMATION
  Report Type: 
  Country: None (occurrence: None)
  Receive Date: 20050520
  Receipt Date: 20050315
  Transmission Date: 20051028
  Serious: No
  Sender: FDA-Public Use
  Company Number: 10602

PATIENT
  Age: 21 Year
  Sex: Female

DRUGS (7)
  1. VINCRISTINE [Suspect]
     Indication: LYMPHOMA
     Dosage: 25 MG Q21DAYS, IV
     Route: 042
     Dates: start: 20050201
  2. METOCLOPRAMIDE [Suspect]
  3. RITUXIMAB [Concomitant]
  4. DOXORUBICIN HCL [Concomitant]
  5. PREDNISOLONE [Concomitant]
  6. CHLORPHENAMINE [Concomitant]
  7. ONDANSETRON [Concomitant]

REACTIONS (1)
  - LOCAL SWELLING [None]
